FAERS Safety Report 7982535 (Version 2)
Quarter: 2018Q4

REPORT INFORMATION
  Report Type: Report from Study
  Country: JP (occurrence: JP)
  Receive Date: 20110609
  Receipt Date: 20181213
  Transmission Date: 20190205
  Serious: Yes (Hospitalization)
  Sender: FDA-Public Use
  Company Number: PHHY2009JP00891

PATIENT
  Age: 84 Year
  Sex: Female
  Weight: 44 kg

DRUGS (9)
  1. LOXONIN [Concomitant]
     Active Substance: LOXOPROFEN SODIUM
     Indication: PRODUCT USED FOR UNKNOWN INDICATION
     Dosage: 120 MG, UNK
     Route: 048
     Dates: start: 20050510, end: 20080806
  2. DIOVAN [Suspect]
     Active Substance: VALSARTAN
     Indication: HYPERTENSION
     Dosage: 40 MG, QD
     Route: 048
     Dates: start: 20071129, end: 20080806
  3. DIOVAN [Suspect]
     Active Substance: VALSARTAN
     Dosage: 80 MG, QD
     Route: 048
     Dates: start: 20080807
  4. FLUITRAN [Concomitant]
     Active Substance: TRICHLORMETHIAZIDE
     Indication: HYPERTENSION
     Dosage: 1 MG, UNK
     Route: 048
     Dates: start: 19990706
  5. LANTELOL [Concomitant]
     Indication: HYPERTENSION
     Dosage: 10 MG, UNK
     Route: 048
     Dates: start: 20011120
  6. SAYMOTIN [Concomitant]
     Active Substance: KALLIDINOGENASE
     Indication: HYPERTENSION
     Dosage: 50 IU, UNK
     Route: 048
     Dates: start: 20070602, end: 20071128
  7. APLACE [Concomitant]
     Active Substance: TROXIPIDE
     Indication: PRODUCT USED FOR UNKNOWN INDICATION
     Dosage: 200 MG, UNK
     Route: 048
     Dates: start: 19940506
  8. OLMETEC [Concomitant]
     Active Substance: OLMESARTAN MEDOXOMIL
     Indication: HYPERTENSION
     Dosage: 20 MG, UNK
     Route: 048
     Dates: start: 20070602, end: 20071128
  9. HYPEN [Concomitant]
     Indication: PRODUCT USED FOR UNKNOWN INDICATION
     Dosage: 400 MG, UNK
     Route: 048
     Dates: start: 20080807

REACTIONS (2)
  - Contusion [Unknown]
  - Subdural haematoma [Recovered/Resolved]

NARRATIVE: CASE EVENT DATE: 20080913
